FAERS Safety Report 9834543 (Version 2)
Quarter: 2014Q1

REPORT INFORMATION
  Report Type: Spontaneous
  Country: JP (occurrence: JP)
  Receive Date: 20140122
  Receipt Date: 20140122
  Transmission Date: 20141002
  Serious: Yes (Other)
  Sender: FDA-Public Use
  Company Number: JP-PFIZER INC-2014008313

PATIENT
  Age: 4 Decade
  Sex: Female

DRUGS (2)
  1. SUTENT [Suspect]
     Indication: ALVEOLAR SOFT PART SARCOMA
     Dosage: 37.5 MG, DAILY
     Route: 048
     Dates: start: 20120201, end: 20121025
  2. SUTENT [Suspect]
     Dosage: 37.5 MG, DAILY
     Route: 048
     Dates: start: 20130820

REACTIONS (4)
  - Second primary malignancy [Unknown]
  - Pituitary tumour [Unknown]
  - Off label use [Unknown]
  - Blood prolactin increased [Unknown]
